FAERS Safety Report 6460548-5 (Version None)
Quarter: 2009Q4

REPORT INFORMATION
  Report Type: 
  Country: None (occurrence: None)
  Receive Date: 20091125
  Receipt Date: 20091125
  Transmission Date: 20100525
  Serious: Yes (Death)
  Sender: FDA-Public Use
  Company Number: None

PATIENT
  Sex: Male
  Weight: 107.9561 kg

DRUGS (9)
  1. CHANTIX [Suspect]
     Indication: CHRONIC OBSTRUCTIVE PULMONARY DISEASE
     Dosage: STARTER PACK BID PO APPROX. 1 MONTH
     Route: 048
     Dates: start: 20091009, end: 20091112
  2. CHANTIX [Suspect]
     Indication: TOBACCO ABUSE
     Dosage: STARTER PACK BID PO APPROX. 1 MONTH
     Route: 048
     Dates: start: 20091009, end: 20091112
  3. SPIRIVA [Concomitant]
  4. ALBUTEROL [Concomitant]
  5. NORVASC [Concomitant]
  6. BENICAR [Concomitant]
  7. OMEPRAZOLE [Concomitant]
  8. M.V.I. [Concomitant]
  9. ASPIRIN [Concomitant]

REACTIONS (1)
  - COMPLETED SUICIDE [None]
